FAERS Safety Report 13093508 (Version 2)
Quarter: 2017Q1

REPORT INFORMATION
  Report Type: Spontaneous
  Country: US (occurrence: US)
  Receive Date: 20170106
  Receipt Date: 20170222
  Transmission Date: 20170428
  Serious: No
  Sender: FDA-Public Use
  Company Number: US-ASTRAZENECA-2017SE00607

PATIENT
  Age: 26350 Day
  Sex: Female
  Weight: 77.1 kg

DRUGS (10)
  1. PULMICORT FLEXHALER [Suspect]
     Active Substance: BUDESONIDE
     Indication: PNEUMONIA
     Route: 055
     Dates: start: 20161228
  2. PREDNISONE. [Concomitant]
     Active Substance: PREDNISONE
     Indication: PNEUMONIA
     Route: 048
  3. VITAMIN D3 [Concomitant]
     Active Substance: CHOLECALCIFEROL
     Indication: VITAMIN SUPPLEMENTATION
  4. VITAMIN B50 WITH FOLIC ACID [Concomitant]
     Indication: VITAMIN SUPPLEMENTATION
  5. LOSARTAN. [Concomitant]
     Active Substance: LOSARTAN
     Indication: BLOOD PRESSURE MEASUREMENT
     Route: 048
  6. CEFTIN [Concomitant]
     Active Substance: CEFUROXIME AXETIL
     Indication: PNEUMONIA
     Route: 048
  7. FISH OIL [Concomitant]
     Active Substance: FISH OIL
     Indication: VITAMIN SUPPLEMENTATION
  8. PROBIOTICS [Concomitant]
     Active Substance: PROBIOTICS NOS
     Indication: VITAMIN SUPPLEMENTATION
  9. VERAPAMIL [Concomitant]
     Active Substance: VERAPAMIL HYDROCHLORIDE
     Indication: BLOOD PRESSURE MEASUREMENT
     Route: 048
  10. COQ10 [Concomitant]
     Active Substance: UBIDECARENONE
     Indication: VITAMIN SUPPLEMENTATION

REACTIONS (5)
  - Device issue [Unknown]
  - Dysphonia [Not Recovered/Not Resolved]
  - Off label use [Not Recovered/Not Resolved]
  - Ageusia [Unknown]
  - Product use issue [Unknown]

NARRATIVE: CASE EVENT DATE: 20161228
